FAERS Safety Report 26004986 (Version 1)
Quarter: 2025Q4

REPORT INFORMATION
  Report Type: Spontaneous
  Country: TR (occurrence: TR)
  Receive Date: 20251106
  Receipt Date: 20251106
  Transmission Date: 20260118
  Serious: Yes (Other)
  Sender: JOHNSON AND JOHNSON
  Company Number: TR-JNJFOC-20251141467

PATIENT
  Age: 28 Year
  Sex: Female

DRUGS (3)
  1. UPTRAVI [Suspect]
     Active Substance: SELEXIPAG
     Indication: Pulmonary hypertension
     Route: 048
  2. MACITENTAN [Concomitant]
     Active Substance: MACITENTAN
     Indication: Product used for unknown indication
  3. RIOCIGUAT [Concomitant]
     Active Substance: RIOCIGUAT
     Indication: Product used for unknown indication

REACTIONS (4)
  - Pericardial effusion [Unknown]
  - Right ventricular dysfunction [Unknown]
  - Retching [Unknown]
  - Pain [Unknown]

NARRATIVE: CASE EVENT DATE: 20240801
